FAERS Safety Report 11107000 (Version 1)
Quarter: 2015Q2

REPORT INFORMATION
  Report Type: Spontaneous
  Country: US (occurrence: None)
  Receive Date: 20150511
  Receipt Date: 20150511
  Transmission Date: 20150821
  Serious: No
  Sender: FDA-Public Use
  Company Number: None

PATIENT
  Age: 54 Year
  Sex: Male
  Weight: 94.35 kg

DRUGS (2)
  1. TIKOSYN [Suspect]
     Active Substance: DOFETILIDE
     Indication: ATRIAL FIBRILLATION
  2. ELLIQUIS [Concomitant]

REACTIONS (9)
  - Cough [None]
  - Diarrhoea [None]
  - Influenza like illness [None]
  - Night sweats [None]
  - Immune system disorder [None]
  - Productive cough [None]
  - Hypophagia [None]
  - Headache [None]
  - Insomnia [None]

NARRATIVE: CASE EVENT DATE: 20150508
